FAERS Safety Report 4280541-0 (Version None)
Quarter: 2004Q1

REPORT INFORMATION
  Report Type: 
  Country: None (occurrence: None)
  Receive Date: 20040128
  Receipt Date: 20040120
  Transmission Date: 20041129
  Serious: Yes (Other)
  Sender: FDA-Public Use
  Company Number: WAES 0401USA01644

PATIENT
  Age: 27 Year
  Sex: Male
  Weight: 20 kg

DRUGS (4)
  1. CAPTOPRIL [Suspect]
     Route: 048
  2. PEPCID [Suspect]
     Route: 048
  3. MANGANESE SULFATE [Suspect]
     Route: 048
  4. ZINC SULFATE [Suspect]

REACTIONS (2)
  - LOSS OF CONSCIOUSNESS [None]
  - THROMBIN TIME PROLONGED [None]
